FAERS Safety Report 25528446 (Version 3)
Quarter: 2025Q3

REPORT INFORMATION
  Report Type: Report from Study
  Country: US (occurrence: US)
  Receive Date: 20250708
  Receipt Date: 20250902
  Transmission Date: 20251020
  Serious: Yes (Hospitalization, Other)
  Sender: SUNOVION
  Company Number: US-SMPA-2025SPA008126

PATIENT
  Age: 83 Year
  Sex: Male

DRUGS (4)
  1. ORGOVYX [Suspect]
     Active Substance: RELUGOLIX
     Indication: Prostate cancer
     Route: 048
  2. ORGOVYX [Suspect]
     Active Substance: RELUGOLIX
     Route: 048
  3. ERLEADA [Suspect]
     Active Substance: APALUTAMIDE
  4. BENADRYL [Concomitant]
     Active Substance: DIPHENHYDRAMINE HYDROCHLORIDE

REACTIONS (10)
  - Nephrolithiasis [Unknown]
  - Urinary tract infection bacterial [Unknown]
  - Escherichia infection [Unknown]
  - Kidney infection [Unknown]
  - Stent placement [Unknown]
  - Hypersensitivity [Unknown]
  - Rash erythematous [Unknown]
  - Weight decreased [Unknown]
  - Asthenia [Unknown]
  - Product dose omission issue [Recovered/Resolved]
